FAERS Safety Report 6924242-6 (Version None)
Quarter: 2010Q3

REPORT INFORMATION
  Report Type: 
  Country: None (occurrence: None)
  Receive Date: 20100813
  Receipt Date: 20100809
  Transmission Date: 20110219
  Serious: Yes (Hospitalization)
  Sender: FDA-Public Use
  Company Number: US-GILEAD-2010-0030957

PATIENT
  Sex: Female
  Weight: 113.5 kg

DRUGS (14)
  1. LETAIRIS [Suspect]
     Indication: PULMONARY ARTERIAL HYPERTENSION
     Route: 048
     Dates: start: 20090509
  2. VIAGRA [Concomitant]
  3. COUMADIN [Concomitant]
  4. LASIX [Concomitant]
  5. NORVASC [Concomitant]
  6. CATAPRES [Concomitant]
  7. TIMOPTIC-XE [Concomitant]
  8. FOLIC ACID [Concomitant]
  9. VITAMIN B-12 [Concomitant]
  10. NEXIUM [Concomitant]
  11. KLOR-CON [Concomitant]
  12. LEXAPRO [Concomitant]
  13. COLACE [Concomitant]
  14. CENTRUM [Concomitant]

REACTIONS (2)
  - CHEST PAIN [None]
  - DYSPNOEA [None]
